FAERS Safety Report 6357978-9 (Version None)
Quarter: 2009Q3

REPORT INFORMATION
  Report Type: 
  Country: None (occurrence: None)
  Receive Date: 20090916
  Receipt Date: 20090908
  Transmission Date: 20100115
  Serious: Yes (Death, Hospitalization)
  Sender: FDA-Public Use
  Company Number: US-GILEAD-2009-0024131

PATIENT
  Sex: Female
  Weight: 55.388 kg

DRUGS (25)
  1. LETAIRIS [Suspect]
     Indication: PULMONARY ARTERIAL HYPERTENSION
     Route: 048
     Dates: start: 20090727
  2. REMODULIN [Concomitant]
  3. REVATIO [Concomitant]
  4. OXYGEN [Concomitant]
  5. WARFARIN SODIUM [Concomitant]
  6. COZAAR [Concomitant]
  7. METOPROLOL TARTRATE [Concomitant]
  8. HYDROCHLOROTHIAZIDE [Concomitant]
  9. HYZAAR [Concomitant]
  10. DIGOXIN [Concomitant]
  11. CLONIDINE [Concomitant]
  12. CYMBALTA [Concomitant]
  13. AMITRIPTYLINE [Concomitant]
  14. GABAPENTIN [Concomitant]
  15. DILAUDID [Concomitant]
  16. KETAMINE HCL [Concomitant]
  17. KETOPROFEN [Concomitant]
  18. LIDOCAINE [Concomitant]
  19. ACETAMINOPHEN [Concomitant]
  20. POLOXAMER GEL [Concomitant]
  21. ZOFRAN [Concomitant]
  22. REGLAN [Concomitant]
  23. NEXIUM [Concomitant]
  24. MYLANTA LIQUID [Concomitant]
  25. LECITHIN [Concomitant]

REACTIONS (3)
  - ACUTE RESPIRATORY FAILURE [None]
  - HAEMOPTYSIS [None]
  - PNEUMONIA STAPHYLOCOCCAL [None]
